FAERS Safety Report 8076852-3 (Version None)
Quarter: 2012Q1

REPORT INFORMATION
  Report Type: 
  Country: None (occurrence: None)
  Receive Date: 20120127
  Receipt Date: 20120124
  Transmission Date: 20120608
  Serious: Yes (Life-Threatening, Hospitalization)
  Sender: FDA-Public Use
  Company Number: US-JNJFOC-20080202630

PATIENT
  Sex: Female
  Weight: 58.97 kg

DRUGS (2)
  1. SEASONIQUE [Concomitant]
     Indication: CONTRACEPTION
     Route: 048
     Dates: start: 20060101, end: 20080201
  2. INVEGA [Suspect]
     Indication: AFFECTIVE DISORDER
     Route: 048
     Dates: start: 20080120, end: 20080202

REACTIONS (2)
  - DEEP VEIN THROMBOSIS [None]
  - ADVERSE EVENT [None]
